FAERS Safety Report 13839510 (Version 1)
Quarter: 2017Q3

REPORT INFORMATION
  Report Type: Spontaneous
  Country: US (occurrence: US)
  Receive Date: 20170805
  Receipt Date: 20170805
  Transmission Date: 20171127
  Serious: No
  Sender: FDA-Public Use
  Company Number: None

PATIENT
  Age: 82 Year
  Sex: Female

DRUGS (12)
  1. FUROSEMIDE. [Concomitant]
     Active Substance: FUROSEMIDE
  2. METOPROLOL SUCCINATE. [Concomitant]
     Active Substance: METOPROLOL SUCCINATE
  3. INSULIN GLARGINE [Suspect]
     Active Substance: INSULIN GLARGINE
     Indication: HYPERGLYCAEMIA
     Route: 058
     Dates: start: 20130601
  4. INSULIN GLARGINE [Concomitant]
     Active Substance: INSULIN GLARGINE
  5. LOSARTAN. [Concomitant]
     Active Substance: LOSARTAN
  6. TRAVOPROST. [Concomitant]
     Active Substance: TRAVOPROST
  7. ATORVASTATIN [Concomitant]
     Active Substance: ATORVASTATIN
  8. ASPIRIN. [Concomitant]
     Active Substance: ASPIRIN
  9. LOPERAMIDE [Concomitant]
     Active Substance: LOPERAMIDE
  10. INSULIN LISPRO [Concomitant]
     Active Substance: INSULIN LISPRO
  11. ACETAMINOPHEN. [Concomitant]
     Active Substance: ACETAMINOPHEN
  12. ONABOTULINUM TOXIN A [Concomitant]
     Active Substance: ONABOTULINUMTOXINA

REACTIONS (6)
  - Hyperhidrosis [None]
  - Supraventricular tachycardia [None]
  - Cardiac failure congestive [None]
  - Cold sweat [None]
  - Blood glucose increased [None]
  - Blood glucose decreased [None]

NARRATIVE: CASE EVENT DATE: 20170301
